FAERS Safety Report 13281156 (Version 2)
Quarter: 2017Q2

REPORT INFORMATION
  Report Type: Spontaneous
  Country: US (occurrence: US)
  Receive Date: 20170301
  Receipt Date: 20170628
  Transmission Date: 20170830
  Serious: Yes (Hospitalization, Other)
  Sender: FDA-Public Use
  Company Number: US-ALEXION PHARMACEUTICALS INC.-A201701796

PATIENT
  Sex: Female

DRUGS (1)
  1. SOLIRIS [Suspect]
     Active Substance: ECULIZUMAB
     Indication: HAEMOLYTIC URAEMIC SYNDROME
     Route: 042

REACTIONS (9)
  - Platelet count decreased [Unknown]
  - Kidney transplant rejection [Unknown]
  - Blood lactate dehydrogenase abnormal [Unknown]
  - Fatigue [Unknown]
  - Acute kidney injury [Unknown]
  - Feeling abnormal [Unknown]
  - Drug ineffective [Unknown]
  - Renal cyst ruptured [Unknown]
  - Blood creatinine abnormal [Unknown]
